FAERS Safety Report 9636106 (Version 2)
Quarter: 2013Q4

REPORT INFORMATION
  Report Type: Spontaneous
  Country: US (occurrence: US)
  Receive Date: 20131021
  Receipt Date: 20131028
  Transmission Date: 20140711
  Serious: Yes (Hospitalization)
  Sender: FDA-Public Use
  Company Number: US-AMGEN-USASP2013073356

PATIENT
  Age: 57 Year
  Sex: Female
  Weight: 81.63 kg

DRUGS (2)
  1. ENBREL [Suspect]
     Indication: PSORIATIC ARTHROPATHY
     Dosage: 50 MG, QWK
     Route: 065
     Dates: start: 20100122
  2. METHOTREXATE [Concomitant]
     Dosage: UNK

REACTIONS (1)
  - Joint injury [Recovered/Resolved]
